FAERS Safety Report 6088996-6 (Version None)
Quarter: 2009Q1

REPORT INFORMATION
  Report Type: 
  Country: None (occurrence: None)
  Receive Date: 20090224
  Receipt Date: 20090218
  Transmission Date: 20090719
  Serious: Yes (Other)
  Sender: FDA-Public Use
  Company Number: JNJCH-2009001817

PATIENT
  Age: 67 Year
  Sex: Female
  Weight: 66.7 kg

DRUGS (5)
  1. BENADRYL [Suspect]
     Indication: RHINORRHOEA
     Dosage: TEXT:3 TABLETS 8 HOURS APART
     Route: 048
     Dates: start: 20090115, end: 20090115
  2. MIACALCIN [Concomitant]
     Indication: OSTEOPOROSIS
     Dosage: TEXT:1X DAY
     Route: 065
  3. CALCIUM [Concomitant]
     Indication: DRUG USE FOR UNKNOWN INDICATION
     Dosage: TEXT:UNSPECIFIED
     Route: 065
  4. VITAMIN D [Concomitant]
     Indication: DRUG USE FOR UNKNOWN INDICATION
     Dosage: TEXT:UNSPECIFIED
     Route: 065
  5. VITAMIN E [Concomitant]
     Indication: DRUG USE FOR UNKNOWN INDICATION
     Dosage: TEXT:UNSPECIFIED
     Route: 065

REACTIONS (1)
  - LOSS OF CONSCIOUSNESS [None]
